FAERS Safety Report 5318092-4 (Version None)
Quarter: 2007Q1

REPORT INFORMATION
  Report Type: 
  Country: None (occurrence: None)
  Receive Date: 20070207
  Receipt Date: 20061215
  Transmission Date: 20070707
  Serious: No
  Sender: FDA-Public Use
  Company Number: SPV1-2006-02206

PATIENT
  Age: 67 Year
  Sex: Male
  Weight: 90.7 kg

DRUGS (4)
  1. FOSRENOL [Suspect]
     Indication: HYPERPHOSPHATAEMIA
     Dosage: 1500MG DAILY
     Dates: start: 20061211
  2. VITAMINS [Concomitant]
  3. HEPARIN [Concomitant]
  4. COLACE (DOCUSATE SODIUM) [Concomitant]

REACTIONS (1)
  - PRURITUS [None]
